FAERS Safety Report 8433511-2 (Version None)
Quarter: 2012Q2

REPORT INFORMATION
  Report Type: 
  Country: None (occurrence: None)
  Receive Date: 20120613
  Receipt Date: 20120604
  Transmission Date: 20120825
  Serious: Yes (Hospitalization)
  Sender: FDA-Public Use
  Company Number: US-ASTRAZENECA-2012SE37624

PATIENT

DRUGS (1)
  1. SYMBICORT [Suspect]
     Dosage: 80/4.5 MCG, 10.2 GM, 1 PUFF BID
     Route: 055
     Dates: start: 20120604

REACTIONS (3)
  - CIRCUMSTANCE OR INFORMATION CAPABLE OF LEADING TO MEDICATION ERROR [None]
  - DYSPHONIA [None]
  - DYSPNOEA [None]
